FAERS Safety Report 13277859 (Version 2)
Quarter: 2017Q2

REPORT INFORMATION
  Report Type: Report from Study
  Country: CA (occurrence: CA)
  Receive Date: 20170228
  Receipt Date: 20170413
  Transmission Date: 20170830
  Serious: Yes (Hospitalization, Other)
  Sender: FDA-Public Use
  Company Number: CA-JNJFOC-20170222527

PATIENT
  Age: 76 Year
  Sex: Male
  Weight: 88.9 kg

DRUGS (2)
  1. REMICADE [Suspect]
     Active Substance: INFLIXIMAB
     Indication: CROHN^S DISEASE
     Route: 042
  2. REMICADE [Suspect]
     Active Substance: INFLIXIMAB
     Indication: CROHN^S DISEASE
     Route: 042
     Dates: start: 20150625

REACTIONS (6)
  - Malaise [Unknown]
  - Intestinal stenosis [Unknown]
  - Arthralgia [Unknown]
  - Off label use [Unknown]
  - Hydrocephalus [Unknown]
  - Product use issue [Unknown]

NARRATIVE: CASE EVENT DATE: 20170210
